FAERS Safety Report 7169993-6 (Version None)
Quarter: 2010Q4

REPORT INFORMATION
  Report Type: 
  Country: None (occurrence: None)
  Receive Date: 20101217
  Receipt Date: 20101209
  Transmission Date: 20110411
  Serious: Yes (Life-Threatening)
  Sender: FDA-Public Use
  Company Number: FR-TYCO HEALTHCARE/MALLINCKRODT-T201002420

PATIENT
  Age: 72 Year
  Sex: Male
  Weight: 100 kg

DRUGS (1)
  1. OPTIJECT [Suspect]
     Indication: DIAGNOSTIC PROCEDURE
     Dosage: 60 ML, SINGLE
     Route: 042
     Dates: start: 20101209, end: 20101209

REACTIONS (3)
  - CARDIAC ARREST [None]
  - NAUSEA [None]
  - PRURITUS [None]
